FAERS Safety Report 15308543 (Version 1)
Quarter: 2018Q3

REPORT INFORMATION
  Report Type: Spontaneous
  Country: US (occurrence: US)
  Receive Date: 20180822
  Receipt Date: 20180822
  Transmission Date: 20181010
  Serious: Yes (Hospitalization)
  Sender: FDA-Public Use
  Company Number: US-FRESENIUS MEDICAL CARE RENAL THERAPIES GROUP-FMC-1808-001524

PATIENT
  Age: 38 Year
  Sex: Male

DRUGS (9)
  1. SPIRONOLACTONE. [Concomitant]
     Active Substance: SPIRONOLACTONE
  2. CARVEDILOL. [Concomitant]
     Active Substance: CARVEDILOL
  3. LEVOFLOXACIN. [Concomitant]
     Active Substance: LEVOFLOXACIN
  4. CLONIDINE. [Concomitant]
     Active Substance: CLONIDINE
  5. DELFLEX [Suspect]
     Active Substance: CALCIUM CHLORIDE\DEXTROSE\MAGNESIUM CHLORIDE\SODIUM CHLORIDE\SODIUM LACTATE
     Indication: END STAGE RENAL DISEASE
     Route: 033
  6. FUROSEMIDE. [Concomitant]
     Active Substance: FUROSEMIDE
  7. HYDRALAZINE [Concomitant]
     Active Substance: HYDRALAZINE HYDROCHLORIDE
  8. LOSARTAN. [Concomitant]
     Active Substance: LOSARTAN
  9. NORVASC [Concomitant]
     Active Substance: AMLODIPINE BESYLATE

REACTIONS (2)
  - Sepsis [Recovered/Resolved]
  - Peritonitis [Recovered/Resolved]

NARRATIVE: CASE EVENT DATE: 20180808
